FAERS Safety Report 18256855 (Version 2)
Quarter: 2020Q3

REPORT INFORMATION
  Report Type: Spontaneous
  Country: DE (occurrence: DE)
  Receive Date: 20200911
  Receipt Date: 20200915
  Transmission Date: 20201103
  Serious: Yes (Life-Threatening, Hospitalization)
  Sender: FDA-Public Use
  Company Number: DE-PFIZER INC-2020346642

PATIENT
  Age: 63 Year
  Sex: Male

DRUGS (13)
  1. QUETIAPINE. [Concomitant]
     Active Substance: QUETIAPINE
     Indication: DEPRESSION
     Dosage: 350 MG
     Dates: start: 2017
  2. OPIPRAMOL [Concomitant]
     Active Substance: OPIPRAMOL
     Indication: PSYCHOTHERAPY
     Dosage: 300 MG
  3. LORAZEPAM. [Suspect]
     Active Substance: LORAZEPAM
     Indication: DEPRESSION
     Dosage: WITHDRAWAL
  4. AGOMELATINE [Concomitant]
     Active Substance: AGOMELATINE
     Indication: DEPRESSION
  5. LORAZEPAM. [Suspect]
     Active Substance: LORAZEPAM
     Dosage: WITHDRAWAL
     Dates: start: 201707
  6. QUETIAPINE. [Concomitant]
     Active Substance: QUETIAPINE
     Indication: PSYCHOTHERAPY
     Dosage: 600 MG
  7. QUETIAPINE. [Concomitant]
     Active Substance: QUETIAPINE
     Dosage: 400 MG
     Dates: start: 2017
  8. OPIPRAMOL [Concomitant]
     Active Substance: OPIPRAMOL
     Indication: DEPRESSION
  9. LORAZEPAM. [Suspect]
     Active Substance: LORAZEPAM
     Indication: PSYCHOTHERAPY
     Dosage: 2 MG
  10. AGOMELATINE [Concomitant]
     Active Substance: AGOMELATINE
     Indication: PSYCHOTHERAPY
     Dosage: 25 MG
  11. SERTRALINE [Concomitant]
     Active Substance: SERTRALINE HYDROCHLORIDE
     Indication: PSYCHOTHERAPY
     Dosage: 100 MG
  12. SERTRALINE [Concomitant]
     Active Substance: SERTRALINE HYDROCHLORIDE
     Indication: DEPRESSION
     Dosage: 200 MG
     Dates: start: 2017
  13. PIPAMPERONE [Concomitant]
     Active Substance: PIPAMPERONE
     Indication: DEPRESSION
     Dosage: 120 MG
     Dates: start: 2017

REACTIONS (3)
  - Toxicity to various agents [Unknown]
  - Drug abuse [Unknown]
  - Drug dependence [Unknown]

NARRATIVE: CASE EVENT DATE: 201701
